FAERS Safety Report 11439624 (Version 1)
Quarter: 2015Q3

REPORT INFORMATION
  Report Type: Spontaneous
  Country: US (occurrence: None)
  Receive Date: 20150831
  Receipt Date: 20150831
  Transmission Date: 20151125
  Serious: No
  Sender: FDA-Public Use
  Company Number: None

PATIENT

DRUGS (1)
  1. ESTRADIOL. [Suspect]
     Active Substance: ESTRADIOL

REACTIONS (3)
  - Product adhesion issue [None]
  - Application site erythema [None]
  - Product substitution issue [None]

NARRATIVE: CASE EVENT DATE: 20150813
